FAERS Safety Report 6267090-5 (Version None)
Quarter: 2009Q3

REPORT INFORMATION
  Report Type: 
  Country: None (occurrence: None)
  Receive Date: 20090710
  Receipt Date: 20090707
  Transmission Date: 20100115
  Serious: Yes (Other)
  Sender: FDA-Public Use
  Company Number: ADR8192009 (REF NO.: JUTA1160-09)

PATIENT
  Age: 66 Year
  Sex: Female

DRUGS (4)
  1. ALENDRO-Q 70 MG (ALENDRONATE) [Suspect]
  2. ASPIRIN [Concomitant]
  3. LEVOTHYROXINE SODIUM [Concomitant]
  4. SPIRIVA RESPIRAT (TIOTROPIUM) [Concomitant]

REACTIONS (3)
  - BLOOD PRESSURE INCREASED [None]
  - DRY MOUTH [None]
  - MEDICATION ERROR [None]
